FAERS Safety Report 5759511-9 (Version None)
Quarter: 2008Q2

REPORT INFORMATION
  Report Type: 
  Country: None (occurrence: None)
  Receive Date: 20080604
  Receipt Date: 20080604
  Transmission Date: 20081010
  Serious: Yes (Life-Threatening, Hospitalization, Other)
  Sender: FDA-Public Use
  Company Number: None

PATIENT
  Age: 59 Year
  Sex: Female
  Weight: 90.7194 kg

DRUGS (3)
  1. COMPAZINE [Suspect]
     Indication: NAUSEA
     Dosage: IV BAG OVER 20 VEINS
     Route: 042
     Dates: start: 20071101, end: 20080301
  2. REGLAN [Suspect]
     Route: 042
  3. PHENERGAN HCL [Suspect]
     Indication: ABDOMINAL PAIN UPPER
     Route: 042

REACTIONS (5)
  - ABDOMINAL PAIN UPPER [None]
  - BURNING SENSATION [None]
  - DIARRHOEA [None]
  - LACRIMATION INCREASED [None]
  - VULVOVAGINAL BURNING SENSATION [None]
